FAERS Safety Report 14675628 (Version 4)
Quarter: 2018Q2

REPORT INFORMATION
  Report Type: Report from Study
  Country: None (occurrence: JP)
  Receive Date: 20180323
  Receipt Date: 20180612
  Transmission Date: 20180711
  Serious: Yes (Hospitalization)
  Sender: FDA-Public Use
  Company Number: JP-ABBVIE-18P-087-2292247-00

PATIENT
  Age: 76 Year
  Sex: Female
  Weight: 43.1 kg

DRUGS (22)
  1. LEVOFLOXACIN. [Concomitant]
     Active Substance: LEVOFLOXACIN
     Indication: INFECTION PROPHYLAXIS
     Route: 048
     Dates: start: 20170828, end: 20171018
  2. VENETOCLAX. [Suspect]
     Active Substance: VENETOCLAX
     Route: 048
     Dates: start: 20170829, end: 20170829
  3. LEVOFLOXACIN. [Concomitant]
     Active Substance: LEVOFLOXACIN
     Route: 048
     Dates: start: 20180308, end: 20180402
  4. SOLDEM 6 [Concomitant]
     Indication: PROPHYLAXIS
     Route: 042
     Dates: start: 20170828, end: 20170901
  5. CYTARABINE. [Suspect]
     Active Substance: CYTARABINE
     Dosage: DAYS 1  10 OF 28 DAYS CYCLE.
     Route: 058
     Dates: start: 20180418
  6. LEVOFLOXACIN. [Concomitant]
     Active Substance: LEVOFLOXACIN
     Route: 048
     Dates: start: 20180203, end: 20180223
  7. MAGMITT TAB [Concomitant]
     Indication: CONSTIPATION
     Route: 048
     Dates: start: 20170918, end: 20171005
  8. FEBUXOSTAT. [Concomitant]
     Active Substance: FEBUXOSTAT
     Indication: TUMOUR LYSIS SYNDROME
     Route: 048
     Dates: start: 20170822, end: 20170831
  9. SOLDEM 6 [Concomitant]
     Indication: FLUID REPLACEMENT
  10. VENETOCLAX. [Suspect]
     Active Substance: VENETOCLAX
     Route: 048
     Dates: start: 20170831, end: 20180319
  11. VENETOCLAX. [Suspect]
     Active Substance: VENETOCLAX
     Route: 048
     Dates: start: 20180418
  12. SENNOSIDE [Concomitant]
     Active Substance: SENNOSIDES
     Indication: CONSTIPATION
     Route: 048
     Dates: start: 20170830
  13. MAGMITT TAB [Concomitant]
     Route: 048
     Dates: start: 20171006
  14. FEBUXOSTAT. [Concomitant]
     Active Substance: FEBUXOSTAT
     Indication: PROPHYLAXIS
  15. VENETOCLAX. [Suspect]
     Active Substance: VENETOCLAX
     Route: 048
     Dates: start: 20170830, end: 20170830
  16. LEVOFLOXACIN. [Concomitant]
     Active Substance: LEVOFLOXACIN
     Route: 048
     Dates: start: 20171103, end: 20171122
  17. DERMOSOL G [Concomitant]
     Indication: DERMATITIS CONTACT
     Dosage: FINGERTIP UNIT - CUTANEOUS ROUTE
     Route: 050
     Dates: start: 20170828
  18. SOLDEM 6 [Concomitant]
     Indication: TUMOUR LYSIS SYNDROME
     Route: 042
     Dates: start: 20170822, end: 20170827
  19. VENETOCLAX. [Suspect]
     Active Substance: VENETOCLAX
     Indication: ACUTE MYELOID LEUKAEMIA
     Route: 048
     Dates: start: 20170828, end: 20170828
  20. LEVOFLOXACIN. [Concomitant]
     Active Substance: LEVOFLOXACIN
     Route: 048
     Dates: start: 20171209, end: 20180104
  21. CYTARABINE. [Suspect]
     Active Substance: CYTARABINE
     Indication: ACUTE MYELOID LEUKAEMIA
     Dosage: DAYS 1  10 OF 28 DAYS CYCLE.
     Route: 058
     Dates: start: 20170828, end: 20180308
  22. FAMOTIDINE. [Concomitant]
     Active Substance: FAMOTIDINE
     Indication: PROPHYLAXIS AGAINST GASTROINTESTINAL ULCER
     Route: 048
     Dates: start: 201411

REACTIONS (2)
  - White blood cell count decreased [Recovered/Resolved]
  - Neutrophil count decreased [Recovered/Resolved]

NARRATIVE: CASE EVENT DATE: 20180315
